FAERS Safety Report 6719007-4 (Version None)
Quarter: 2010Q2

REPORT INFORMATION
  Report Type: 
  Country: None (occurrence: None)
  Receive Date: 20100507
  Receipt Date: 20100427
  Transmission Date: 20101027
  Serious: Yes (Other)
  Sender: FDA-Public Use
  Company Number: 010981

PATIENT
  Sex: Female

DRUGS (1)
  1. CIMZIA [Suspect]
     Dosage: (LESS THAN ONE YEAR SUBCUTANEOUS)
     Route: 058

REACTIONS (1)
  - DERMATITIS PSORIASIFORM [None]
